FAERS Safety Report 7394712-8 (Version None)
Quarter: 2011Q2

REPORT INFORMATION
  Report Type: 
  Country: None (occurrence: None)
  Receive Date: 20110405
  Receipt Date: 20110323
  Transmission Date: 20111010
  Serious: Yes (Hospitalization, Other)
  Sender: FDA-Public Use
  Company Number: PHHY2009CA20167

PATIENT
  Sex: Male

DRUGS (2)
  1. SANDOSTATIN LAR [Suspect]
     Indication: PANCREATIC NEUROENDOCRINE TUMOUR
     Dosage: 30 MG, EVERY 4 WEEKS
     Route: 030
     Dates: start: 20090420
  2. CHEMOTHERAPEUTICS NOS [Concomitant]
     Route: 048

REACTIONS (21)
  - POST PROCEDURAL COMPLICATION [None]
  - FATIGUE [None]
  - ABDOMINAL PAIN [None]
  - PYREXIA [None]
  - MALAISE [None]
  - STICKY SKIN [None]
  - BODY TEMPERATURE INCREASED [None]
  - COUGH [None]
  - NEOPLASM PROGRESSION [None]
  - CHILLS [None]
  - MYALGIA [None]
  - FLATULENCE [None]
  - PAIN IN EXTREMITY [None]
  - DIARRHOEA [None]
  - PNEUMONIA [None]
  - FLUID RETENTION [None]
  - BLOOD PRESSURE DECREASED [None]
  - PAIN [None]
  - ABNORMAL BEHAVIOUR [None]
  - ASTHENIA [None]
  - HEART RATE IRREGULAR [None]
